FAERS Safety Report 7224185-7 (Version None)
Quarter: 2011Q1

REPORT INFORMATION
  Report Type: 
  Country: None (occurrence: None)
  Receive Date: 20110108
  Receipt Date: 20110108
  Transmission Date: 20110831
  Serious: Yes (Death, Life-Threatening, Hospitalization)
  Sender: FDA-Public Use
  Company Number: None

PATIENT
  Age: 76 Year
  Sex: Female
  Weight: 54.4316 kg

DRUGS (2)
  1. PROPOXYPHENE HYDROCHLORIDE [Suspect]
     Indication: PAIN IN EXTREMITY
  2. PROPOXYPHENE HYDROCHLORIDE [Suspect]
     Indication: ABDOMINAL PAIN

REACTIONS (6)
  - PRODUCT QUALITY ISSUE [None]
  - SYNCOPE [None]
  - NO THERAPEUTIC RESPONSE [None]
  - CARDIAC FAILURE CONGESTIVE [None]
  - DIZZINESS [None]
  - ARRHYTHMIA [None]
